FAERS Safety Report 5043035-0 (Version None)
Quarter: 2006Q2

REPORT INFORMATION
  Report Type: 
  Country: None (occurrence: None)
  Receive Date: 20060627
  Receipt Date: 20060613
  Transmission Date: 20061013
  Serious: Yes (Hospitalization)
  Sender: FDA-Public Use
  Company Number: 2005155877

PATIENT
  Age: 60 Year
  Sex: Female
  Weight: 54 kg

DRUGS (14)
  1. AROMASIN [Suspect]
     Indication: BREAST CANCER
     Dosage: 25 MG DAILY ORAL
     Route: 048
     Dates: start: 20050205
  2. AROMASIN [Suspect]
     Indication: BREAST CANCER
     Dosage: 25 MG DAILY ORAL
     Route: 048
     Dates: start: 20050811
  3. FAMOTIDINE [Suspect]
     Indication: GASTRIC ULCER
     Dosage: 20 MG (20 MG, DAILY), ORAL
     Route: 048
     Dates: start: 20060427
  4. MUCOSTA (REBAMIPINE) [Concomitant]
  5. URSO 250 [Concomitant]
  6. NITROL R (ISOSORBIDE DINITRATE) [Concomitant]
  7. ALPRAZOLAM [Concomitant]
  8. DEPAS (ETIZOLAM) [Concomitant]
  9. SILECE (FLUNITRAZEPAM) [Concomitant]
  10. DORAL [Concomitant]
  11. ASPIRIN [Concomitant]
  12. PURSENNID (SENNA LEAF) [Concomitant]
  13. NITROPEN (GLYCERYL TRINITRATE) [Concomitant]
  14. SELBEX (TEPRENONE) [Concomitant]

REACTIONS (6)
  - ANGINA PECTORIS [None]
  - CONDITION AGGRAVATED [None]
  - CORONARY ARTERY STENOSIS [None]
  - LIVER DISORDER [None]
  - OEDEMA DUE TO CARDIAC DISEASE [None]
  - RENAL DISORDER [None]
